FAERS Safety Report 11349954 (Version 2)
Quarter: 2015Q3

REPORT INFORMATION
  Report Type: Report from Study
  Country: CH (occurrence: CH)
  Receive Date: 20150807
  Receipt Date: 20150817
  Transmission Date: 20151125
  Serious: Yes (Hospitalization)
  Sender: FDA-Public Use
  Company Number: CH-BIOGENIDEC-2015BI108278

PATIENT
  Age: 52 Year
  Sex: Female

DRUGS (10)
  1. BETASERC [Concomitant]
     Active Substance: BETAHISTINE
  2. MST CONTINUS RET [Concomitant]
  3. IBUPROFEN. [Concomitant]
     Active Substance: IBUPROFEN
     Indication: PROPHYLAXIS
  4. RASILEZ [Concomitant]
     Active Substance: ALISKIREN
  5. AVONEX [Suspect]
     Active Substance: INTERFERON BETA-1A
     Indication: MULTIPLE SCLEROSIS
     Route: 030
     Dates: start: 20020816
  6. AVONEX [Suspect]
     Active Substance: INTERFERON BETA-1A
     Indication: MULTIPLE SCLEROSIS
  7. MST CONTINUS RET [Concomitant]
  8. TIMONIL RET [Concomitant]
  9. PANTOZOL [Concomitant]
     Active Substance: PANTOPRAZOLE SODIUM
  10. CONCOR [Concomitant]
     Active Substance: BISOPROLOL FUMARATE

REACTIONS (5)
  - Fall [Recovered/Resolved]
  - Radius fracture [Not Recovered/Not Resolved]
  - Joint dislocation [Not Recovered/Not Resolved]
  - Hand fracture [Not Recovered/Not Resolved]
  - Wound [Not Recovered/Not Resolved]

NARRATIVE: CASE EVENT DATE: 20150723
